FAERS Safety Report 14125349 (Version 1)
Quarter: 2017Q4

REPORT INFORMATION
  Report Type: Report from Study
  Country: None (occurrence: SI)
  Receive Date: 20171025
  Receipt Date: 20171025
  Transmission Date: 20180321
  Serious: Yes (Other)
  Sender: FDA-Public Use
  Company Number: SI-ABBVIE-17K-261-2141153-00

PATIENT
  Age: 75 Year
  Sex: Female

DRUGS (1)
  1. DUODOPA [Suspect]
     Active Substance: CARBIDOPA\LEVODOPA
     Indication: PARKINSON^S DISEASE
     Route: 050
     Dates: start: 201508

REACTIONS (2)
  - Fall [Not Recovered/Not Resolved]
  - Pubis fracture [Recovering/Resolving]

NARRATIVE: CASE EVENT DATE: 2017
